FAERS Safety Report 11201015 (Version 1)
Quarter: 2015Q2

REPORT INFORMATION
  Report Type: Spontaneous
  Country: KR (occurrence: KR)
  Receive Date: 20150618
  Receipt Date: 20150618
  Transmission Date: 20150821
  Serious: Yes (Other)
  Sender: FDA-Public Use
  Company Number: KR-MYLANLABS-2015M1019791

PATIENT

DRUGS (2)
  1. CIPROFLOXACIN. [Suspect]
     Active Substance: CIPROFLOXACIN
     Indication: PSEUDOMONAL BACTERAEMIA
     Route: 042
  2. COLISTIN [Concomitant]
     Active Substance: COLISTIN
     Indication: PSEUDOMONAL BACTERAEMIA
     Dosage: 150 MG, BID
     Route: 042

REACTIONS (4)
  - Pseudomonal bacteraemia [Recovering/Resolving]
  - Pseudomonal sepsis [Recovering/Resolving]
  - Treatment failure [Unknown]
  - Drug resistance [Unknown]
